FAERS Safety Report 11857819 (Version 2)
Quarter: 2016Q1

REPORT INFORMATION
  Report Type: Report from Study
  Country: US (occurrence: US)
  Receive Date: 20151222
  Receipt Date: 20160122
  Transmission Date: 20160526
  Serious: Yes (Death, Hospitalization, Other)
  Sender: FDA-Public Use
  Company Number: US-GILEAD-2015-0189359

PATIENT
  Age: 75 Year
  Sex: Male

DRUGS (1)
  1. AMBRISENTAN [Suspect]
     Active Substance: AMBRISENTAN
     Indication: PULMONARY ARTERIAL HYPERTENSION
     Dosage: 10 MG, QD
     Route: 065
     Dates: start: 20151118, end: 20151216

REACTIONS (5)
  - Dyspnoea [Unknown]
  - Respiratory failure [Fatal]
  - Fluid overload [Unknown]
  - Cor pulmonale acute [Fatal]
  - Pulmonary hypertension [Fatal]
